FAERS Safety Report 10223179 (Version 1)
Quarter: 2014Q2

REPORT INFORMATION
  Report Type: Spontaneous
  Country: US (occurrence: None)
  Receive Date: 20140605
  Receipt Date: 20140605
  Transmission Date: 20141212
  Serious: Yes (Other)
  Sender: FDA-Public Use
  Company Number: UNT-2014-000238

PATIENT
  Age: 47 Year
  Sex: Female
  Weight: 117.9 kg

DRUGS (2)
  1. TYVASO (TRESPROSTINIL SODIUM) INHALATION GAS. 6MG/ML [Suspect]
     Indication: COR PULMONALE CHRONIC
     Route: 055
     Dates: start: 20140506
  2. ADCIRCA (TADALAFIL) [Concomitant]

REACTIONS (7)
  - Oxygen saturation decreased [None]
  - Cough [None]
  - Chest discomfort [None]
  - Eructation [None]
  - Decreased appetite [None]
  - Pruritus [None]
  - Diarrhoea [None]
